FAERS Safety Report 8555478-9 (Version None)
Quarter: 2012Q3

REPORT INFORMATION
  Report Type: 
  Country: None (occurrence: None)
  Receive Date: 20120731
  Receipt Date: 20110711
  Transmission Date: 20120928
  Serious: No
  Sender: FDA-Public Use
  Company Number: US-ASTRAZENECA-2011SE10383

PATIENT
  Age: 46 Year
  Sex: Male
  Weight: 77.1 kg

DRUGS (4)
  1. GEODON [Concomitant]
     Indication: BIPOLAR DISORDER
  2. KLONOPIN [Concomitant]
     Indication: AFFECTIVE DISORDER
  3. SEROQUEL [Suspect]
     Indication: DEPRESSION
     Route: 048
  4. SEROQUEL [Suspect]
     Indication: BIPOLAR DISORDER
     Route: 048

REACTIONS (4)
  - INSOMNIA [None]
  - DRUG DOSE OMISSION [None]
  - FEELING ABNORMAL [None]
  - BIPOLAR DISORDER [None]
